FAERS Safety Report 10465269 (Version 1)
Quarter: 2014Q3

REPORT INFORMATION
  Report Type: Report from Study
  Country: TR (occurrence: TR)
  Receive Date: 20140919
  Receipt Date: 20140919
  Transmission Date: 20150326
  Serious: Yes (Death, Hospitalization)
  Sender: FDA-Public Use
  Company Number: TR-US-EMD SERONO, INC.-7321136

PATIENT
  Sex: Male
  Weight: 63 kg

DRUGS (1)
  1. REBIF [Suspect]
     Active Substance: INTERFERON BETA-1A
     Indication: MULTIPLE SCLEROSIS
     Dates: start: 201405, end: 20140623

REACTIONS (2)
  - Death [Fatal]
  - Hemiparesis [Unknown]

NARRATIVE: CASE EVENT DATE: 20140623
